FAERS Safety Report 5873178-0 (Version None)
Quarter: 2008Q3

REPORT INFORMATION
  Report Type: 
  Country: None (occurrence: None)
  Receive Date: 20080908
  Receipt Date: 20080826
  Transmission Date: 20090109
  Serious: Yes (Other)
  Sender: FDA-Public Use
  Company Number: FR-JNJFOC-20080806182

PATIENT
  Age: 56 Year
  Sex: Male

DRUGS (7)
  1. REMICADE [Suspect]
     Route: 042
  2. REMICADE [Suspect]
     Dosage: 13TH INFUSION
     Route: 042
  3. REMICADE [Suspect]
     Indication: ANKYLOSING SPONDYLITIS
     Route: 042
  4. ENBREL [Suspect]
     Indication: ANKYLOSING SPONDYLITIS
     Route: 058
  5. HUMIRA [Suspect]
     Indication: ANKYLOSING SPONDYLITIS
     Route: 058
  6. METHOTREXATE [Concomitant]
     Indication: ANKYLOSING SPONDYLITIS
  7. MOGADON [Concomitant]
     Indication: ANKYLOSING SPONDYLITIS

REACTIONS (3)
  - INFUSION RELATED REACTION [None]
  - PSORIASIS [None]
  - PUSTULAR PSORIASIS [None]
